FAERS Safety Report 12626632 (Version 2)
Quarter: 2016Q3

REPORT INFORMATION
  Report Type: Spontaneous
  Country: CH (occurrence: CH)
  Receive Date: 20160805
  Receipt Date: 20160811
  Transmission Date: 20161109
  Serious: Yes (Hospitalization, Other)
  Sender: FDA-Public Use
  Company Number: CH-PFIZER INC-2016371427

PATIENT
  Age: 82 Year
  Sex: Male

DRUGS (1)
  1. TEMESTA EXPIDET [Suspect]
     Active Substance: LORAZEPAM
     Dosage: 1 MG, UNK
     Route: 048

REACTIONS (4)
  - Wrong technique in product usage process [Unknown]
  - Foreign body [Recovered/Resolved]
  - Product blister packaging issue [Unknown]
  - Oesophageal perforation [Recovering/Resolving]
